FAERS Safety Report 12851746 (Version 7)
Quarter: 2017Q3

REPORT INFORMATION
  Report Type: Report from Study
  Country: JP (occurrence: JP)
  Receive Date: 20161017
  Receipt Date: 20170804
  Transmission Date: 20171127
  Serious: Yes (Other)
  Sender: FDA-Public Use
  Company Number: JP-BRISTOL-MYERS SQUIBB COMPANY-BMS-2016-085883

PATIENT
  Age: 61 Year
  Sex: Female

DRUGS (1)
  1. NIVOLUMAB [Suspect]
     Active Substance: NIVOLUMAB
     Indication: MALIGNANT MELANOMA
     Dosage: 2 MG/KG, UNK
     Route: 065
     Dates: start: 20150929

REACTIONS (2)
  - Facial paralysis [Recovered/Resolved]
  - IIIrd nerve paralysis [Recovered/Resolved]

NARRATIVE: CASE EVENT DATE: 201608
